FAERS Safety Report 19856085 (Version 1)
Quarter: 2021Q3

REPORT INFORMATION
  Report Type: Spontaneous
  Country: US (occurrence: US)
  Receive Date: 20210920
  Receipt Date: 20210920
  Transmission Date: 20211014
  Serious: Yes (Life-Threatening, Hospitalization)
  Sender: FDA-Public Use
  Company Number: None

PATIENT
  Age: 3 Year
  Sex: Male
  Weight: 15.8 kg

DRUGS (1)
  1. CLONIDINE. [Suspect]
     Active Substance: CLONIDINE
     Indication: ATTENTION DEFICIT HYPERACTIVITY DISORDER
     Route: 048
     Dates: start: 20210805, end: 20210917

REACTIONS (8)
  - Mental status changes [None]
  - Ileus [None]
  - Unresponsive to stimuli [None]
  - Bradycardia [None]
  - Asthenia [None]
  - Hypotonia [None]
  - Impulsive behaviour [None]
  - Depression [None]

NARRATIVE: CASE EVENT DATE: 20210917
